FAERS Safety Report 7508114-4 (Version None)
Quarter: 2011Q2

REPORT INFORMATION
  Report Type: 
  Country: None (occurrence: None)
  Receive Date: 20110527
  Receipt Date: 20110516
  Transmission Date: 20111010
  Serious: Yes (Hospitalization, Other)
  Sender: FDA-Public Use
  Company Number: US-BAYER-2011-042205

PATIENT
  Age: 46 Year
  Sex: Female

DRUGS (1)
  1. BEYAZ [Suspect]
     Indication: PREMENSTRUAL SYNDROME
     Dosage: UNK
     Dates: start: 20101001, end: 20110201

REACTIONS (5)
  - STREPTOCOCCAL INFECTION [None]
  - THROMBOSIS [None]
  - PAIN [None]
  - INTERNATIONAL NORMALISED RATIO INCREASED [None]
  - AMENORRHOEA [None]
